FAERS Safety Report 19714394 (Version 1)
Quarter: 2021Q3

REPORT INFORMATION
  Report Type: Spontaneous
  Country: US (occurrence: US)
  Receive Date: 20210818
  Receipt Date: 20210818
  Transmission Date: 20211014
  Serious: No
  Sender: FDA-Public Use
  Company Number: US-CELLTRION INC.-2021US008556

PATIENT

DRUGS (8)
  1. TREANDA [Suspect]
     Active Substance: BENDAMUSTINE HYDROCHLORIDE
     Indication: NEUTROPENIA
     Dosage: 198.9 MG
     Route: 042
     Dates: start: 20210524
  2. TREANDA [Suspect]
     Active Substance: BENDAMUSTINE HYDROCHLORIDE
     Indication: NODULAR LYMPHOCYTE PREDOMINANT HODGKIN LYMPHOMA
     Dosage: 198.9 MG
     Route: 042
     Dates: start: 20210426
  3. TREANDA [Suspect]
     Active Substance: BENDAMUSTINE HYDROCHLORIDE
     Dosage: 198.9 MG
     Route: 042
     Dates: start: 20210621
  4. TRUXIMA [Suspect]
     Active Substance: RITUXIMAB-ABBS
     Indication: NODULAR LYMPHOCYTE PREDOMINANT HODGKIN LYMPHOMA
     Dosage: 1100 MG FOR EVERY INFUSION
     Route: 042
     Dates: start: 20210426
  5. TRUXIMA [Suspect]
     Active Substance: RITUXIMAB-ABBS
     Dosage: 1100 MG FOR EVERY INFUSION
     Route: 042
     Dates: start: 20210621
  6. TRUXIMA [Suspect]
     Active Substance: RITUXIMAB-ABBS
     Indication: NEUTROPENIA
     Dosage: 1100 MG FOR EVERY INFUSION
     Route: 042
     Dates: start: 20210524
  7. TRUXIMA [Suspect]
     Active Substance: RITUXIMAB-ABBS
     Dosage: 1100 MG FOR EVERY INFUSION
     Route: 042
     Dates: start: 20210719
  8. TREANDA [Suspect]
     Active Substance: BENDAMUSTINE HYDROCHLORIDE
     Dosage: 198.9 MG
     Route: 042
     Dates: start: 20210719

REACTIONS (1)
  - Off label use [Unknown]
